FAERS Safety Report 9460386 (Version 5)
Quarter: 2013Q4

REPORT INFORMATION
  Report Type: Spontaneous
  Country: US (occurrence: US)
  Receive Date: 20130815
  Receipt Date: 20131220
  Transmission Date: 20140711
  Serious: Yes (Hospitalization, Other)
  Sender: FDA-Public Use
  Company Number: US-009507513-1108USA01223

PATIENT
  Sex: Female
  Weight: 79.82 kg

DRUGS (4)
  1. FOSAMAX [Suspect]
     Indication: BONE LOSS
     Route: 048
     Dates: start: 2001, end: 201012
  2. FOSAMAX PLUS D [Suspect]
     Indication: BONE LOSS
     Route: 048
  3. MORPHINE [Concomitant]
     Indication: BONE LOSS
     Dosage: 5 MG, UNK
  4. PHENERGAN (PROMETHAZINE HYDROCHLORIDE) [Concomitant]
     Indication: BONE LOSS
     Dosage: 12.5 MG, UNK

REACTIONS (35)
  - Femur fracture [Unknown]
  - Femur fracture [Unknown]
  - Intramedullary rod insertion [Unknown]
  - Femur fracture [Unknown]
  - Femur fracture [Unknown]
  - Intramedullary rod insertion [Unknown]
  - Hysterectomy [Unknown]
  - Intramedullary rod insertion [Unknown]
  - Surgery [Unknown]
  - Back disorder [Unknown]
  - Adverse event [Unknown]
  - Thyroid disorder [Unknown]
  - Spinal compression fracture [Unknown]
  - Fall [Unknown]
  - Osteoarthritis [Unknown]
  - Spinal osteoarthritis [Unknown]
  - Osteopenia [Unknown]
  - Osteoarthritis [Unknown]
  - Meniscus injury [Unknown]
  - Patellofemoral pain syndrome [Unknown]
  - Hyperlipidaemia [Unknown]
  - Muscular weakness [Not Recovered/Not Resolved]
  - Fall [Unknown]
  - Hypothyroidism [Unknown]
  - Hypertension [Unknown]
  - Hyponatraemia [Unknown]
  - Inappropriate antidiuretic hormone secretion [Unknown]
  - Adverse event [Unknown]
  - Osteoarthritis [Unknown]
  - Device breakage [Unknown]
  - Fracture nonunion [Unknown]
  - Pain in extremity [Unknown]
  - Myalgia [Unknown]
  - Nausea [Recovering/Resolving]
  - Gastrooesophageal reflux disease [Unknown]
